FAERS Safety Report 4597652-2 (Version None)
Quarter: 2005Q1

REPORT INFORMATION
  Report Type: 
  Country: None (occurrence: None)
  Receive Date: 20050303
  Receipt Date: 20050202
  Transmission Date: 20050727
  Serious: Yes (Hospitalization)
  Sender: FDA-Public Use
  Company Number: JP-GLAXOSMITHKLINE-B0369819A

PATIENT
  Age: 73 Year
  Sex: Male
  Weight: 64.2 kg

DRUGS (6)
  1. VALTREX [Suspect]
     Indication: HERPES ZOSTER
     Dosage: 500MG TWICE PER DAY
     Route: 048
     Dates: start: 20050127, end: 20050129
  2. MEXITIL [Concomitant]
     Dosage: 150MG PER DAY
     Route: 048
  3. EXCELASE [Concomitant]
     Route: 048
  4. MUCOSTA [Concomitant]
     Dosage: 300MG PER DAY
     Route: 048
  5. ACINON [Concomitant]
     Dosage: 150MG PER DAY
     Route: 048
  6. PRECIPITATED CALCIUM CARBONATE [Concomitant]
     Dosage: 3.99G PER DAY
     Route: 048

REACTIONS (2)
  - DIZZINESS [None]
  - HYPOAESTHESIA [None]
